FAERS Safety Report 16614861 (Version 1)
Quarter: 2019Q3

REPORT INFORMATION
  Report Type: Other
  Country: AU (occurrence: AU)
  Receive Date: 20190723
  Receipt Date: 20190723
  Transmission Date: 20191004
  Serious: Yes (Hospitalization)
  Sender: FDA-Public Use
  Company Number: AU-APOTEX-2019AP018460

PATIENT
  Age: 72 Year
  Sex: Male

DRUGS (1)
  1. APO-CIPROFLOXACIN [Suspect]
     Active Substance: CIPROFLOXACIN HYDROCHLORIDE
     Indication: PROSTATIC OPERATION
     Dosage: UNK
     Route: 048
     Dates: start: 20180802, end: 20180804

REACTIONS (4)
  - Gait inability [Unknown]
  - Small fibre neuropathy [Unknown]
  - Myalgia [Not Recovered/Not Resolved]
  - Loss of personal independence in daily activities [Unknown]

NARRATIVE: CASE EVENT DATE: 20180803
